FAERS Safety Report 23287008 (Version 1)
Quarter: 2023Q4

REPORT INFORMATION
  Report Type: Report from Study
  Country: US (occurrence: US)
  Receive Date: 20231212
  Receipt Date: 20231212
  Transmission Date: 20240110
  Serious: Yes (Other)
  Sender: FDA-Public Use
  Company Number: US-GILEAD-2023-0654213

PATIENT
  Age: 78 Year
  Sex: Female

DRUGS (1)
  1. AZTREONAM LYSINE [Suspect]
     Active Substance: AZTREONAM LYSINE
     Indication: Cystic fibrosis
     Dosage: 75MG VIA NEBULIZER 28DAYS ON 28DAYS OFF
     Route: 055
     Dates: start: 20230228

REACTIONS (1)
  - Pneumonia [Not Recovered/Not Resolved]
